FAERS Safety Report 16807522 (Version 2)
Quarter: 2019Q4

REPORT INFORMATION
  Report Type: Report from Study
  Country: GB (occurrence: GB)
  Receive Date: 20190914
  Receipt Date: 20191227
  Transmission Date: 20200122
  Serious: Yes (Hospitalization)
  Sender: FDA-Public Use
  Company Number: GB-ROCHE-2076221

PATIENT
  Sex: Male

DRUGS (1)
  1. ROACTEMRA [Suspect]
     Active Substance: TOCILIZUMAB
     Indication: RHEUMATOID ARTHRITIS
     Route: 058
     Dates: start: 20150303

REACTIONS (8)
  - Malaise [Unknown]
  - Negative thoughts [Unknown]
  - Gait disturbance [Unknown]
  - Wheelchair user [Unknown]
  - Skin ulcer [Unknown]
  - Memory impairment [Unknown]
  - Cerebrovascular accident [Unknown]
  - Infected skin ulcer [Unknown]
